FAERS Safety Report 15412450 (Version 1)
Quarter: 2018Q3

REPORT INFORMATION
  Report Type: Spontaneous
  Country: US (occurrence: US)
  Receive Date: 20180921
  Receipt Date: 20180921
  Transmission Date: 20181010
  Serious: Yes (Other)
  Sender: FDA-Public Use
  Company Number: US-SA-2018SA260626

PATIENT
  Age: 42 Year
  Sex: Female
  Weight: 63 kg

DRUGS (5)
  1. PLATINOL [Concomitant]
     Active Substance: CISPLATIN
  2. TAXOTERE [Suspect]
     Active Substance: DOCETAXEL
     Indication: LEIOMYOSARCOMA
     Dosage: UNK UNK, QW
     Route: 042
  3. TAXOTERE [Suspect]
     Active Substance: DOCETAXEL
     Dosage: UNK, QW
     Route: 042
     Dates: start: 20081101, end: 20081101
  4. TAXOL [Concomitant]
     Active Substance: PACLITAXEL
  5. ADRIAMYCIN [Concomitant]
     Active Substance: DOXORUBICIN HYDROCHLORIDE

REACTIONS (2)
  - Alopecia [Not Recovered/Not Resolved]
  - Psychological trauma [Unknown]
